FAERS Safety Report 10289932 (Version 1)
Quarter: 2014Q3

REPORT INFORMATION
  Report Type: Spontaneous
  Country: US (occurrence: US)
  Receive Date: 20140710
  Receipt Date: 20140710
  Transmission Date: 20150326
  Serious: Yes (Hospitalization)
  Sender: FDA-Public Use
  Company Number: US-BAYER-2014-100169

PATIENT
  Age: 27 Month
  Sex: Female

DRUGS (1)
  1. NIFEDIPINE. [Suspect]
     Active Substance: NIFEDIPINE
     Dosage: 1-2 PILLS OF 30 MG
     Route: 048

REACTIONS (2)
  - Accidental exposure to product by child [None]
  - Bundle branch block left [Not Recovered/Not Resolved]
